FAERS Safety Report 14524326 (Version 2)
Quarter: 2018Q2

REPORT INFORMATION
  Report Type: Spontaneous
  Country: US (occurrence: US)
  Receive Date: 20180213
  Receipt Date: 20180404
  Transmission Date: 20180711
  Serious: No
  Sender: FDA-Public Use
  Company Number: US-PFIZER INC-2018061885

PATIENT
  Age: 9 Year
  Sex: Male
  Weight: 43.9 kg

DRUGS (3)
  1. GENOTROPIN [Suspect]
     Active Substance: SOMATROPIN
     Indication: GROWTH HORMONE DEFICIENCY
     Dosage: 2 MG DAILY INJECTIONS INTO THE MUSCLE
     Route: 030
     Dates: start: 201711
  2. VOCASIRIN [Concomitant]
     Indication: HYPOVITAMINOSIS
     Dosage: 0.5 DF (1/2 TABLET), UNK
     Route: 048
  3. FOCALIN XR [Concomitant]
     Active Substance: DEXMETHYLPHENIDATE HYDROCHLORIDE
     Indication: ATTENTION DEFICIT/HYPERACTIVITY DISORDER
     Dosage: 40 MG, 1X/DAY
     Route: 048

REACTIONS (5)
  - Device issue [Unknown]
  - Underdose [Unknown]
  - Incorrect route of drug administration [Unknown]
  - Injection site haemorrhage [Unknown]
  - Injection site pain [Recovered/Resolved]

NARRATIVE: CASE EVENT DATE: 201711
